FAERS Safety Report 24618044 (Version 1)
Quarter: 2024Q4

REPORT INFORMATION
  Report Type: Spontaneous
  Country: FR (occurrence: FR)
  Receive Date: 20241114
  Receipt Date: 20241114
  Transmission Date: 20250114
  Serious: Yes (Other)
  Sender: STRIDES
  Company Number: FR-STRIDES ARCOLAB LIMITED-2024SP014633

PATIENT
  Sex: Female

DRUGS (21)
  1. HALOPERIDOL [Suspect]
     Active Substance: HALOPERIDOL
     Indication: Behaviour disorder
     Dosage: UNK
     Route: 065
     Dates: start: 201911
  2. HALOPERIDOL [Suspect]
     Active Substance: HALOPERIDOL
     Indication: Nervous system disorder
  3. HALOPERIDOL [Suspect]
     Active Substance: HALOPERIDOL
     Indication: Mental disorder
  4. OLANZAPINE [Concomitant]
     Active Substance: OLANZAPINE
     Indication: Behaviour disorder
     Dosage: UNK
     Route: 065
     Dates: start: 201906, end: 201911
  5. OLANZAPINE [Concomitant]
     Active Substance: OLANZAPINE
     Indication: Nervous system disorder
     Dosage: 7.5 MILLIGRAM, QD (RESUMED)
     Route: 065
  6. OLANZAPINE [Concomitant]
     Active Substance: OLANZAPINE
     Indication: Mental disorder
  7. TIAPRIDE [Concomitant]
     Active Substance: TIAPRIDE
     Indication: Behaviour disorder
     Dosage: UNK
     Route: 065
     Dates: start: 201906
  8. TIAPRIDE [Concomitant]
     Active Substance: TIAPRIDE
     Indication: Nervous system disorder
  9. TIAPRIDE [Concomitant]
     Active Substance: TIAPRIDE
     Indication: Mental disorder
  10. PIPAMPERONE [Concomitant]
     Active Substance: PIPAMPERONE
     Indication: Behaviour disorder
     Dosage: UNK
     Route: 065
     Dates: start: 201906
  11. PIPAMPERONE [Concomitant]
     Active Substance: PIPAMPERONE
     Indication: Nervous system disorder
  12. PIPAMPERONE [Concomitant]
     Active Substance: PIPAMPERONE
     Indication: Mental disorder
  13. ARIPIPRAZOLE [Concomitant]
     Active Substance: ARIPIPRAZOLE
     Indication: Behaviour disorder
     Dosage: UNK
     Route: 065
     Dates: start: 201906
  14. ARIPIPRAZOLE [Concomitant]
     Active Substance: ARIPIPRAZOLE
     Indication: Nervous system disorder
  15. ARIPIPRAZOLE [Concomitant]
     Active Substance: ARIPIPRAZOLE
     Indication: Mental disorder
  16. RISPERIDONE [Concomitant]
     Active Substance: RISPERIDONE
     Indication: Behaviour disorder
     Dosage: UNK
     Route: 065
     Dates: start: 201906
  17. RISPERIDONE [Concomitant]
     Active Substance: RISPERIDONE
     Indication: Nervous system disorder
  18. RISPERIDONE [Concomitant]
     Active Substance: RISPERIDONE
     Indication: Mental disorder
  19. PALIPERIDONE [Concomitant]
     Active Substance: PALIPERIDONE
     Indication: Behaviour disorder
     Dosage: UNK
     Route: 065
     Dates: start: 201906
  20. PALIPERIDONE [Concomitant]
     Active Substance: PALIPERIDONE
     Indication: Nervous system disorder
  21. PALIPERIDONE [Concomitant]
     Active Substance: PALIPERIDONE
     Indication: Mental disorder

REACTIONS (1)
  - Drug-induced liver injury [Unknown]
